FAERS Safety Report 11500869 (Version 2)
Quarter: 2015Q4

REPORT INFORMATION
  Report Type: Spontaneous
  Country: US (occurrence: US)
  Receive Date: 20150914
  Receipt Date: 20151214
  Transmission Date: 20160304
  Serious: No
  Sender: FDA-Public Use
  Company Number: US-CELGENEUS-USA-2015080548

PATIENT
  Age: 30 Year
  Sex: Male

DRUGS (3)
  1. CLOBETASOL [Concomitant]
     Active Substance: CLOBETASOL
     Indication: PSORIASIS
     Route: 061
  2. OTEZLA [Suspect]
     Active Substance: APREMILAST
     Indication: PSORIASIS
     Dosage: 60 MILLIGRAM
     Route: 048
     Dates: start: 20150703
  3. DESONIDE. [Concomitant]
     Active Substance: DESONIDE
     Indication: PSORIASIS
     Route: 061

REACTIONS (1)
  - Unevaluable event [Recovered/Resolved]

NARRATIVE: CASE EVENT DATE: 201507
